FAERS Safety Report 13758948 (Version 1)
Quarter: 2017Q3

REPORT INFORMATION
  Report Type: Spontaneous
  Country: US (occurrence: US)
  Receive Date: 20170717
  Receipt Date: 20170717
  Transmission Date: 20171127
  Serious: Yes (Hospitalization, Other)
  Sender: FDA-Public Use
  Company Number: None

PATIENT
  Age: 75 Year
  Sex: Female

DRUGS (1)
  1. PROVAYBLUE [Suspect]
     Active Substance: METHYLENE BLUE
     Indication: DRUG THERAPY
     Dosage: ?          OTHER DOSE:ML;?
     Route: 061
     Dates: start: 20170626, end: 20170626

REACTIONS (5)
  - Product formulation issue [None]
  - Skin exfoliation [None]
  - Nipple disorder [None]
  - Contrast media reaction [None]
  - Necrosis [None]

NARRATIVE: CASE EVENT DATE: 20170626
